FAERS Safety Report 7099200-4 (Version None)
Quarter: 2010Q4

REPORT INFORMATION
  Report Type: 
  Country: None (occurrence: None)
  Receive Date: 20101112
  Receipt Date: 20101103
  Transmission Date: 20110411
  Serious: Yes (Hospitalization, Other)
  Sender: FDA-Public Use
  Company Number: US-JNJFOC-20100405013

PATIENT
  Sex: Female

DRUGS (4)
  1. LEVAQUIN [Suspect]
     Indication: PNEUMONIA
     Route: 048
  2. LEVAQUIN [Suspect]
     Route: 042
  3. STEROIDS NOS [Suspect]
     Indication: ILL-DEFINED DISORDER
     Route: 065
  4. PREDNISONE [Suspect]
     Indication: PNEUMONIA
     Route: 048

REACTIONS (4)
  - BURSITIS [None]
  - JOINT INJURY [None]
  - MENISCUS LESION [None]
  - ROTATOR CUFF SYNDROME [None]
